FAERS Safety Report 20442371 (Version 1)
Quarter: 2022Q1

REPORT INFORMATION
  Report Type: Spontaneous
  Country: US (occurrence: US)
  Receive Date: 20220208
  Receipt Date: 20220208
  Transmission Date: 20220424
  Serious: Yes (Hospitalization)
  Sender: FDA-Public Use
  Company Number: US-TERSERA THERAPEUTICS LLC-2022TRS000440

PATIENT

DRUGS (5)
  1. ZICONOTIDE [Suspect]
     Active Substance: ZICONOTIDE
     Indication: Back pain
     Dosage: 1.2 MCG, QD
     Route: 037
  2. ZICONOTIDE [Suspect]
     Active Substance: ZICONOTIDE
     Dosage: 7.372 MCG, QD
     Route: 037
  3. ZICONOTIDE [Suspect]
     Active Substance: ZICONOTIDE
     Dosage: 1.2 MCG, QD
     Route: 037
  4. ZICONOTIDE [Suspect]
     Active Substance: ZICONOTIDE
     Dosage: 0.158 MCG, QD
     Route: 037
  5. LIDOCAINE [Concomitant]
     Active Substance: LIDOCAINE
     Indication: Pain management
     Dosage: UNK
     Route: 061

REACTIONS (5)
  - Acute psychosis [Recovered/Resolved]
  - Urinary tract infection bacterial [Unknown]
  - Disorganised speech [Unknown]
  - Proteinuria [Unknown]
  - Urine ketone body present [Unknown]
